FAERS Safety Report 22657101 (Version 1)
Quarter: 2023Q2

REPORT INFORMATION
  Report Type: Spontaneous
  Country: CN (occurrence: CN)
  Receive Date: 20230630
  Receipt Date: 20230630
  Transmission Date: 20230721
  Serious: Yes (Life-Threatening, Hospitalization)
  Sender: FDA-Public Use
  Company Number: CN-BAUSCH-BL-2023-009540

PATIENT
  Age: 27 Year
  Sex: Female

DRUGS (8)
  1. NIFEDIPINE [Interacting]
     Active Substance: NIFEDIPINE
     Indication: Premature labour
     Route: 065
  2. ATOSIBAN [Interacting]
     Active Substance: ATOSIBAN
     Indication: Premature labour
     Dosage: INDUCTION DOSE OVER 1 MIN (FIRST THREE DAYS)
     Route: 042
  3. ATOSIBAN [Interacting]
     Active Substance: ATOSIBAN
     Dosage: 300 MG/MIN FOR 3 H
     Route: 042
  4. ATOSIBAN [Interacting]
     Active Substance: ATOSIBAN
     Dosage: 100 MG/MIN
     Route: 042
  5. LEVOTHYROXINE [Suspect]
     Active Substance: LEVOTHYROXINE
     Indication: Thyroid hormones decreased
     Route: 065
  6. DESLANOSIDE [Suspect]
     Active Substance: DESLANOSIDE
     Indication: Product used for unknown indication
     Route: 065
  7. FUROSEMIDE [Suspect]
     Active Substance: FUROSEMIDE
     Indication: Product used for unknown indication
     Route: 042
  8. OXYGEN [Suspect]
     Active Substance: OXYGEN
     Indication: Oxygen therapy
     Dosage: HIGH-FLOW OXYGEN WAS INITIATED BY MASK
     Route: 045

REACTIONS (3)
  - Drug interaction [Recovering/Resolving]
  - Non-cardiogenic pulmonary oedema [Recovering/Resolving]
  - Maternal exposure during pregnancy [Unknown]
